FAERS Safety Report 4440877-7 (Version None)
Quarter: 2004Q3

REPORT INFORMATION
  Report Type: 
  Country: None (occurrence: None)
  Receive Date: 20040728
  Receipt Date: 20040401
  Transmission Date: 20050211
  Serious: No
  Sender: FDA-Public Use
  Company Number: USA040157094

PATIENT
  Age: 7 Year
  Sex: Male
  Weight: 20 kg

DRUGS (1)
  1. STRATTERA [Suspect]
     Indication: DISTURBANCE IN ATTENTION
     Dates: start: 20031201, end: 20040115

REACTIONS (2)
  - SKIN DISCOLOURATION [None]
  - VEIN DISORDER [None]
